FAERS Safety Report 17678277 (Version 1)
Quarter: 2020Q2

REPORT INFORMATION
  Report Type: Report from Study
  Country: NL (occurrence: NL)
  Receive Date: 20200417
  Receipt Date: 20200417
  Transmission Date: 20200714
  Serious: Yes (Hospitalization)
  Sender: FDA-Public Use
  Company Number: NL-IPSEN BIOPHARMACEUTICALS, INC.-2020-07186

PATIENT
  Age: 64 Year
  Sex: Male

DRUGS (1)
  1. SOMATULINE AUTOSOLUTION [Suspect]
     Active Substance: LANREOTIDE ACETATE
     Indication: PRODUCT USED FOR UNKNOWN INDICATION
     Route: 058
     Dates: start: 20200319

REACTIONS (2)
  - Cholelithiasis [Recovered/Resolved]
  - Biliary colic [Recovered/Resolved]

NARRATIVE: CASE EVENT DATE: 20200323
